FAERS Safety Report 5812526-4 (Version None)
Quarter: 2008Q3

REPORT INFORMATION
  Report Type: 
  Country: None (occurrence: None)
  Receive Date: 20080714
  Receipt Date: 20080714
  Transmission Date: 20090109
  Serious: Yes (Hospitalization)
  Sender: FDA-Public Use
  Company Number: None

PATIENT
  Age: 77 Year
  Sex: Male

DRUGS (1)
  1. MOXIFLOXACIN HCL [Suspect]
     Dosage: 400MG Q24 IV
     Route: 042
     Dates: start: 20080503, end: 20080510

REACTIONS (1)
  - CLOSTRIDIAL INFECTION [None]
